FAERS Safety Report 5849389-7 (Version None)
Quarter: 2008Q3

REPORT INFORMATION
  Report Type: 
  Country: None (occurrence: None)
  Receive Date: 20080815
  Receipt Date: 20080801
  Transmission Date: 20090109
  Serious: Yes (Hospitalization)
  Sender: FDA-Public Use
  Company Number: A-US2008-21243

PATIENT
  Age: 74 Year
  Sex: Female
  Weight: 87 kg

DRUGS (18)
  1. ILOPROST [Suspect]
     Indication: PULMONARY HYPERTENSION
     Dosage: 5UG, 6 X DAY, RESPIRATORY; 5 UG, RESPIRATORY
     Route: 055
     Dates: start: 20041109, end: 20070410
  2. ILOPROST [Suspect]
     Indication: PULMONARY HYPERTENSION
     Dosage: 5UG, 6 X DAY, RESPIRATORY; 5 UG, RESPIRATORY
     Route: 055
     Dates: start: 20070410
  3. TRACLEER [Suspect]
     Indication: PULMONARY HYPERTENSION
     Dosage: 125 MG, ORAL
     Route: 048
     Dates: start: 20020814
  4. DIGOXIN [Suspect]
     Indication: PULMONARY HYPERTENSION
     Dosage: 0.25 MG, QD
     Dates: start: 20030123, end: 20080701
  5. SYNTHROID [Concomitant]
  6. LORAZEPAM [Concomitant]
  7. MAXZIDE [Concomitant]
  8. COZAAR [Concomitant]
  9. SPIRONOLACTONE [Concomitant]
  10. MULTIVITAMIN [Concomitant]
  11. CALCIUM (CALCIUM CARBONATE) [Concomitant]
  12. URSODIOL [Concomitant]
  13. NASACORT [Concomitant]
  14. AMBIEN [Concomitant]
  15. OXYGEN (OXYGEN) [Concomitant]
  16. LEXAPRO [Concomitant]
  17. WARFARIN SODIUM [Concomitant]
  18. DARVOCET [Concomitant]

REACTIONS (10)
  - ANOREXIA [None]
  - ASTHENIA [None]
  - CARDIOACTIVE DRUG LEVEL ABOVE THERAPEUTIC [None]
  - DIARRHOEA [None]
  - ENDOCRINE DISORDER [None]
  - HEPATITIS [None]
  - NAUSEA [None]
  - POLYMYOSITIS [None]
  - THERAPEUTIC AGENT TOXICITY [None]
  - VOMITING [None]
